FAERS Safety Report 22949591 (Version 10)
Quarter: 2025Q1

REPORT INFORMATION
  Report Type: Spontaneous
  Country: US (occurrence: US)
  Receive Date: 20230915
  Receipt Date: 20250117
  Transmission Date: 20250409
  Serious: No
  Sender: PFIZER
  Company Number: US-PFIZER INC-PV202300152511

PATIENT
  Age: 10 Year
  Sex: Male

DRUGS (2)
  1. GENOTROPIN [Suspect]
     Active Substance: SOMATROPIN
     Dosage: 1 MG, DAILY
  2. GENOTROPIN [Suspect]
     Active Substance: SOMATROPIN

REACTIONS (11)
  - Wrong technique in device usage process [Unknown]
  - Injection site bruising [Recovering/Resolving]
  - Device information output issue [Unknown]
  - Device mechanical issue [Unknown]
  - Device physical property issue [Unknown]
  - Device deposit issue [Unknown]
  - Device delivery system issue [Unknown]
  - Drug dose omission by device [Unknown]
  - Poor quality device used [Unknown]
  - Device malfunction [Unknown]
  - Device breakage [Unknown]
